FAERS Safety Report 18491021 (Version 1)
Quarter: 2020Q4

REPORT INFORMATION
  Report Type: Spontaneous
  Country: US (occurrence: US)
  Receive Date: 20201111
  Receipt Date: 20201111
  Transmission Date: 20210114
  Serious: Yes (Death)
  Sender: FDA-Public Use
  Company Number: None

PATIENT
  Age: 70 Year
  Sex: Male
  Weight: 86.64 kg

DRUGS (17)
  1. ONDANSETRON [Concomitant]
     Active Substance: ONDANSETRON
  2. ALPRAZOLAM. [Concomitant]
     Active Substance: ALPRAZOLAM
  3. ALLOPURINOL. [Concomitant]
     Active Substance: ALLOPURINOL
  4. MAGNESIUM [Concomitant]
     Active Substance: MAGNESIUM
  5. SILDOSIN [Concomitant]
  6. OXYCODONE [Concomitant]
     Active Substance: OXYCODONE
  7. PREDNISONE. [Concomitant]
     Active Substance: PREDNISONE
  8. EVEROLIMUS. [Suspect]
     Active Substance: EVEROLIMUS
     Indication: RENAL CANCER
     Route: 048
     Dates: start: 20201020, end: 20201111
  9. ATORVASTATIN [Concomitant]
     Active Substance: ATORVASTATIN
  10. CALCITRIOL. [Concomitant]
     Active Substance: CALCITRIOL
  11. FINASTERIDE. [Concomitant]
     Active Substance: FINASTERIDE
  12. LENVIMA [Concomitant]
     Active Substance: LENVATINIB
  13. NEXIUM [Concomitant]
     Active Substance: ESOMEPRAZOLE MAGNESIUM
  14. PANTOPRAZOLE [Concomitant]
     Active Substance: PANTOPRAZOLE
  15. TEMAZEPAM. [Concomitant]
     Active Substance: TEMAZEPAM
  16. CYMBALTA [Concomitant]
     Active Substance: DULOXETINE HYDROCHLORIDE
  17. FUROSEMIDE. [Concomitant]
     Active Substance: FUROSEMIDE

REACTIONS (1)
  - Death [None]

NARRATIVE: CASE EVENT DATE: 20201111
